FAERS Safety Report 5007265-6 (Version None)
Quarter: 2006Q2

REPORT INFORMATION
  Report Type: 
  Country: None (occurrence: None)
  Receive Date: 20060518
  Receipt Date: 20060518
  Transmission Date: 20061013
  Serious: Yes (Other)
  Sender: FDA-Public Use
  Company Number: None

PATIENT
  Sex: Female

DRUGS (2)
  1. CYMBALTA [Suspect]
     Indication: PAIN
     Dosage: UP TO 90 A DAY PO
     Route: 048
     Dates: start: 20060201, end: 20060517
  2. CYMBALTA [Suspect]
     Indication: ROAD TRAFFIC ACCIDENT
     Dosage: UP TO 90 A DAY PO
     Route: 048
     Dates: start: 20060201, end: 20060517

REACTIONS (5)
  - ALOPECIA [None]
  - DRUG WITHDRAWAL SYNDROME [None]
  - HAIR DISORDER [None]
  - MALAISE [None]
  - NIGHT SWEATS [None]
